FAERS Safety Report 23366998 (Version 1)
Quarter: 2024Q1

REPORT INFORMATION
  Report Type: Spontaneous
  Country: US (occurrence: None)
  Receive Date: 20240104
  Receipt Date: 20240104
  Transmission Date: 20240410
  Serious: Yes (Disabling)
  Sender: FDA-Public Use
  Company Number: None

PATIENT
  Age: 68 Year
  Sex: Female
  Weight: 60.75 kg

DRUGS (9)
  1. AIMOVIG [Suspect]
     Active Substance: ERENUMAB-AOOE
     Indication: Migraine
     Dosage: OTHER QUANTITY : 1 INJECTION(S);?FREQUENCY : MONTHLY;?
     Route: 030
  2. lostartan [Concomitant]
  3. SUMATRIPTAN [Concomitant]
     Active Substance: SUMATRIPTAN
  4. AMLODIPINE [Concomitant]
     Active Substance: AMLODIPINE BESYLATE
  5. CLARITIN [Concomitant]
     Active Substance: LORATADINE
  6. iron bisglycinate; [Concomitant]
  7. VITAMIN C [Concomitant]
     Active Substance: ASCORBIC ACID
  8. ACETAMINOPHEN [Concomitant]
     Active Substance: ACETAMINOPHEN
  9. NAPROSYN [Concomitant]
     Active Substance: NAPROXEN

REACTIONS (9)
  - Red blood cell count decreased [None]
  - Transferrin saturation decreased [None]
  - Asthenia [None]
  - Dizziness [None]
  - Fatigue [None]
  - Vertigo [None]
  - Nausea [None]
  - Constipation [None]
  - Hypertension [None]

NARRATIVE: CASE EVENT DATE: 20231130
